FAERS Safety Report 8234121-2 (Version None)
Quarter: 2012Q1

REPORT INFORMATION
  Report Type: 
  Country: None (occurrence: None)
  Receive Date: 20120326
  Receipt Date: 20120326
  Transmission Date: 20120608
  Serious: Yes (Life-Threatening, Hospitalization, Disabling, Other)
  Sender: FDA-Public Use
  Company Number: None

PATIENT
  Age: 52 Year
  Sex: Female
  Weight: 83.914 kg

DRUGS (1)
  1. JANUMET [Suspect]
     Indication: TYPE 2 DIABETES MELLITUS
     Dosage: 1 TABLET
     Route: 048
     Dates: start: 20070101, end: 20120325

REACTIONS (17)
  - DIZZINESS [None]
  - PROTEIN URINE PRESENT [None]
  - METAMORPHOPSIA [None]
  - LACTIC ACIDOSIS [None]
  - DIARRHOEA [None]
  - CONFUSIONAL STATE [None]
  - DEHYDRATION [None]
  - MALAISE [None]
  - IMPAIRED WORK ABILITY [None]
  - ASTHENIA [None]
  - LOSS OF CONSCIOUSNESS [None]
  - ABDOMINAL DISCOMFORT [None]
  - DISORIENTATION [None]
  - HEADACHE [None]
  - HEART RATE IRREGULAR [None]
  - PANCREATIC DISORDER [None]
  - VULVOVAGINAL DISCOMFORT [None]
